FAERS Safety Report 13302885 (Version 2)
Quarter: 2017Q1

REPORT INFORMATION
  Report Type: Spontaneous
  Country: US (occurrence: US)
  Receive Date: 20170307
  Receipt Date: 20170313
  Transmission Date: 20170428
  Serious: Yes (Other)
  Sender: FDA-Public Use
  Company Number: US-BAUSCH-BL-2017-004660

PATIENT
  Sex: Female

DRUGS (1)
  1. XIFAXAN [Suspect]
     Active Substance: RIFAXIMIN
     Indication: HEPATIC ENCEPHALOPATHY
     Route: 048
     Dates: start: 201303

REACTIONS (7)
  - Hallucination [Unknown]
  - Gait disturbance [Unknown]
  - Mood altered [Unknown]
  - Memory impairment [Unknown]
  - Drug dose omission [Unknown]
  - Hepatic encephalopathy [Unknown]
  - Sleep disorder [Unknown]
